FAERS Safety Report 6196669-4 (Version None)
Quarter: 2009Q2

REPORT INFORMATION
  Report Type: 
  Country: None (occurrence: None)
  Receive Date: 20090520
  Receipt Date: 20090514
  Transmission Date: 20091009
  Serious: Yes (Hospitalization)
  Sender: FDA-Public Use
  Company Number: B0573990A

PATIENT
  Sex: Female

DRUGS (9)
  1. ZOVIRAX [Suspect]
     Dosage: 750MG THREE TIMES PER DAY
     Route: 042
     Dates: start: 20081204, end: 20081224
  2. AMOXICILLIN TRIHYDRATE [Suspect]
     Indication: URINARY TRACT INFECTION
     Dosage: 2G THREE TIMES PER DAY
     Route: 065
     Dates: start: 20081223, end: 20081224
  3. DI-HYDAN [Suspect]
     Indication: CONVULSION
     Dosage: 300MG TWICE PER DAY
     Route: 065
     Dates: start: 20081209, end: 20081226
  4. AUGMENTIN '125' [Concomitant]
     Indication: ENTEROCOCCAL INFECTION
     Route: 065
  5. ADVIL [Concomitant]
     Route: 065
  6. DI-ANTALVIC [Concomitant]
     Route: 065
  7. HOMEOPATHIC TREATMENT [Concomitant]
     Route: 065
  8. LOVENOX [Concomitant]
     Dosage: .4ML UNKNOWN
     Route: 065
  9. MAGNESIUM SULFATE [Concomitant]
     Route: 065

REACTIONS (11)
  - CONJUNCTIVITIS [None]
  - CONVULSION [None]
  - EOSINOPHILIA [None]
  - ERYTHEMA MULTIFORME [None]
  - HEPATOCELLULAR INJURY [None]
  - MUCOUS MEMBRANE DISORDER [None]
  - PYREXIA [None]
  - RASH MACULO-PAPULAR [None]
  - RASH PRURITIC [None]
  - STEVENS-JOHNSON SYNDROME [None]
  - TOXIC SKIN ERUPTION [None]
